FAERS Safety Report 22235232 (Version 6)
Quarter: 2025Q2

REPORT INFORMATION
  Report Type: Report from Study
  Country: TR (occurrence: TR)
  Receive Date: 20230420
  Receipt Date: 20250605
  Transmission Date: 20250717
  Serious: Yes (Other)
  Sender: CHIESI
  Company Number: TR-AMRYT PHARMACEUTICALS DAC-AEGR006238

PATIENT
  Age: 29 Year
  Sex: Female
  Weight: 50 kg

DRUGS (27)
  1. METRELEPTIN [Suspect]
     Active Substance: METRELEPTIN
     Indication: Congenital generalised lipodystrophy
     Dosage: 5 MILLIGRAM, QD
     Route: 058
     Dates: start: 20150728
  2. METRELEPTIN [Suspect]
     Active Substance: METRELEPTIN
     Dosage: 5.65 MILLIGRAM, QD
     Route: 058
  3. TOUJEO [Concomitant]
     Active Substance: INSULIN GLARGINE
     Indication: Diabetes mellitus
     Dosage: 29 INTERNATIONAL UNIT, QD
     Route: 058
     Dates: start: 200609
  4. TOUJEO [Concomitant]
     Active Substance: INSULIN GLARGINE
     Dosage: 26 INTERNATIONAL UNIT, QD
     Route: 058
     Dates: start: 20220315
  5. TOUJEO [Concomitant]
     Active Substance: INSULIN GLARGINE
     Dosage: 7 INTERNATIONAL UNIT, QD
     Route: 058
     Dates: start: 20220719
  6. Glifix plus [Concomitant]
     Indication: Diabetes mellitus
     Dosage: 1015 MILLIGRAM, BID
     Route: 048
     Dates: start: 2015
  7. LOPID [Concomitant]
     Active Substance: GEMFIBROZIL
     Indication: Hypertriglyceridaemia
     Dosage: 600 MILLIGRAM, BID
     Route: 048
     Dates: start: 2012, end: 20241213
  8. Tiopati [Concomitant]
     Indication: Neuropathy peripheral
     Dosage: 600 MILLIGRAM, QD
     Route: 048
     Dates: start: 20120419
  9. Tiopati [Concomitant]
     Indication: Diabetic neuropathy
     Dosage: 600 MILLIGRAM, QD
     Route: 048
     Dates: start: 20210416
  10. D colefor [Concomitant]
     Indication: Vitamin D deficiency
     Dosage: 20000 INTERNATIONAL UNIT, QOW
     Route: 048
     Dates: start: 20210416
  11. D colefor [Concomitant]
     Indication: Hypercalcaemia
  12. Zentius flash [Concomitant]
     Indication: Hypocalcaemia
     Dosage: 1000 INTERNATIONAL UNIT, QD
     Route: 048
     Dates: start: 20220719
  13. Zentius flash [Concomitant]
     Indication: Vitamin D deficiency
  14. Ecopirin pro [Concomitant]
     Indication: Prophylaxis
     Dosage: 81 MILLIGRAM, QD
     Route: 048
     Dates: start: 20210416
  15. Sinoretik Fort [Concomitant]
     Indication: Hypertension
     Dosage: 2012 MILLIGRAM, QD
     Route: 048
     Dates: start: 20190311
  16. Sinoretik Fort [Concomitant]
     Dosage: 32.5 MILLIGRAM, QD
     Route: 048
  17. EUTHYROX [Concomitant]
     Active Substance: LEVOTHYROXINE SODIUM
     Indication: Hypothyroidism
     Dosage: 300 MICROGRAM, QD
     Route: 048
     Dates: start: 20120419
  18. EUTHYROX [Concomitant]
     Active Substance: LEVOTHYROXINE SODIUM
     Dosage: 300 MILLIGRAM, QD
     Route: 048
     Dates: start: 20190311
  19. FOLIC ACID [Concomitant]
     Active Substance: FOLIC ACID
     Indication: Hypovitaminosis
     Dosage: 5 MILLIGRAM, QD
     Route: 048
     Dates: start: 20210416
  20. FOLIC ACID [Concomitant]
     Active Substance: FOLIC ACID
     Indication: Myelodysplastic syndrome
  21. ARANESP [Concomitant]
     Active Substance: DARBEPOETIN ALFA
     Indication: Anaemia
     Dosage: 100 MICROGRAM, QW
     Route: 058
     Dates: start: 20210903
  22. ARANESP [Concomitant]
     Active Substance: DARBEPOETIN ALFA
     Indication: Myelodysplastic syndrome
  23. CELLCEPT [Concomitant]
     Active Substance: MYCOPHENOLATE MOFETIL
     Indication: Proteinuria
     Dosage: 500 MILLIGRAM, BID
     Route: 048
     Dates: start: 20220124
  24. CELLCEPT [Concomitant]
     Active Substance: MYCOPHENOLATE MOFETIL
     Indication: Nephrotic syndrome
  25. PARLODEL [Concomitant]
     Active Substance: BROMOCRIPTINE MESYLATE
     Indication: Diabetes mellitus
     Dosage: 2.5 MILLIGRAM, BID
     Route: 048
     Dates: start: 20221220
  26. PARLODEL [Concomitant]
     Active Substance: BROMOCRIPTINE MESYLATE
     Indication: Insulin resistance
     Dosage: 1.25 MILLIGRAM, BID
     Route: 048
  27. CYANOCOBALAMIN\PYRIDOXINE\THIAMINE [Concomitant]
     Active Substance: CYANOCOBALAMIN\PYRIDOXINE\THIAMINE
     Indication: Hypovitaminosis
     Dosage: 1 DOSAGE FORM, QD
     Route: 048

REACTIONS (12)
  - Diabetes mellitus [Not Recovered/Not Resolved]
  - Periodontitis [Unknown]
  - Gingival abscess [Unknown]
  - Proteinuria [Unknown]
  - Blood triglycerides increased [Unknown]
  - Insulin resistance [Unknown]
  - Hyperphagia [Unknown]
  - Condition aggravated [Unknown]
  - Hypertriglyceridaemia [Unknown]
  - Glycosylated haemoglobin increased [Unknown]
  - Drug specific antibody present [Unknown]
  - Drug ineffective [Unknown]

NARRATIVE: CASE EVENT DATE: 20210904
